FAERS Safety Report 4687853-7 (Version None)
Quarter: 2005Q2

REPORT INFORMATION
  Report Type: 
  Country: None (occurrence: None)
  Receive Date: 20050610
  Receipt Date: 20050531
  Transmission Date: 20051028
  Serious: Yes (Other)
  Sender: FDA-Public Use
  Company Number: US-JNJFOC-20050600788

PATIENT
  Age: 4 Year
  Sex: Male

DRUGS (2)
  1. TOPAMAX [Suspect]
     Indication: BIPOLAR DISORDER
     Route: 049
     Dates: start: 20050526, end: 20050529
  2. WELLBUTRIN [Concomitant]
     Indication: BIPOLAR DISORDER
     Route: 049
     Dates: start: 20050527, end: 20050527

REACTIONS (2)
  - BLINDNESS [None]
  - HALLUCINATION, VISUAL [None]
